FAERS Safety Report 7633250-1 (Version None)
Quarter: 2011Q3

REPORT INFORMATION
  Report Type: 
  Country: None (occurrence: None)
  Receive Date: 20110725
  Receipt Date: 20110720
  Transmission Date: 20111222
  Serious: Yes (Death, Hospitalization, Other)
  Sender: FDA-Public Use
  Company Number: CN-ROXANE LABORATORIES, INC.-2011-RO-01000RO

PATIENT
  Age: 33 Year
  Sex: Male

DRUGS (3)
  1. PREDNISONE [Suspect]
     Indication: PLATELET COUNT DECREASED
  2. CYCLOSPORINE [Suspect]
     Indication: APLASTIC ANAEMIA
  3. CYCLOSPORINE [Suspect]
     Indication: PROPHYLAXIS AGAINST GRAFT VERSUS HOST DISEASE

REACTIONS (11)
  - PANCYTOPENIA [None]
  - THROMBOCYTOPENIA [None]
  - RESPIRATORY TRACT INFECTION [None]
  - STOMATITIS [None]
  - DIARRHOEA [None]
  - HAEMORRHAGE INTRACRANIAL [None]
  - KAPOSI'S SARCOMA [None]
  - VARICELLA [None]
  - PNEUMONIA [None]
  - TRANSPLANT REJECTION [None]
  - SEPSIS [None]
